FAERS Safety Report 16162143 (Version 2)
Quarter: 2019Q2

REPORT INFORMATION
  Report Type: Spontaneous
  Country: US (occurrence: US)
  Receive Date: 20190405
  Receipt Date: 20190513
  Transmission Date: 20190711
  Serious: No
  Sender: FDA-Public Use
  Company Number: US-PFIZER INC-2019148076

PATIENT
  Sex: Male

DRUGS (1)
  1. DICLOFENAC EPOLAMINE [Suspect]
     Active Substance: DICLOFENAC EPOLAMINE
     Route: 062

REACTIONS (4)
  - Application site burn [Unknown]
  - Product adhesion issue [Unknown]
  - Urticaria [Unknown]
  - Pruritus [Unknown]
